FAERS Safety Report 5824286-1 (Version None)
Quarter: 2008Q3

REPORT INFORMATION
  Report Type: 
  Country: None (occurrence: None)
  Receive Date: 20080728
  Receipt Date: 20080715
  Transmission Date: 20090109
  Serious: Yes (Congenital Anomaly)
  Sender: FDA-Public Use
  Company Number: MX-ROCHE-576164

PATIENT
  Sex: Female
  Weight: 3.1 kg

DRUGS (5)
  1. CLONAZEPAM [Suspect]
     Route: 064
  2. PHENYTOIN [Suspect]
  3. CARBAMAZEPINE [Suspect]
  4. FOLIC ACID [Concomitant]
     Dosage: PREVENTION THE DEVELOPMENT OF NEURAL TUBE DEFECTS. AS OF THE FIRST WEEK OF PREGNANCY.
  5. MULTIVITAMIN NOS [Concomitant]
     Dosage: STARTED IN THE FIRST TRIMESTER OF PREGNANCY.

REACTIONS (1)
  - VENTRICULAR SEPTAL DEFECT [None]
